FAERS Safety Report 14139646 (Version 1)
Quarter: 2017Q4

REPORT INFORMATION
  Report Type: Spontaneous
  Country: ES (occurrence: ES)
  Receive Date: 20171029
  Receipt Date: 20171029
  Transmission Date: 20180321
  Serious: Yes (Other)
  Sender: FDA-Public Use
  Company Number: PHHY2017ES155568

PATIENT
  Age: 67 Year
  Sex: Male

DRUGS (3)
  1. COLCHICINE. [Suspect]
     Active Substance: COLCHICINE
     Dosage: 1 MG, Q12H
     Route: 065
  2. COLCHICINE. [Suspect]
     Active Substance: COLCHICINE
     Indication: FAMILIAL MEDITERRANEAN FEVER
     Dosage: 0.5 MG, Q12H
     Route: 065
     Dates: end: 2010
  3. ENALAPRIL [Suspect]
     Active Substance: ENALAPRIL
     Indication: PROTEINURIA
     Route: 065

REACTIONS (3)
  - Nephrotic syndrome [Recovered/Resolved]
  - Renal impairment [Recovering/Resolving]
  - Hypotension [Unknown]
